FAERS Safety Report 8674333 (Version 8)
Quarter: 2013Q4

REPORT INFORMATION
  Report Type: Report from Study
  Country: DE (occurrence: DE)
  Receive Date: 20120720
  Receipt Date: 20131209
  Transmission Date: 20140711
  Serious: Yes (Life-Threatening, Hospitalization, Disabling, Other)
  Sender: FDA-Public Use
  Company Number: DE-BIOGENIDEC-2012BI018930

PATIENT
  Age: 38 Year
  Sex: Female
  Weight: 86 kg

DRUGS (4)
  1. TYSABRI [Suspect]
     Indication: RELAPSING-REMITTING MULTIPLE SCLEROSIS
     Route: 042
     Dates: start: 201002, end: 20120516
  2. BACLOFEN [Concomitant]
     Indication: MUSCLE SPASTICITY
     Route: 048
     Dates: start: 201002
  3. VOLTAREN [Concomitant]
  4. DICLOFENAC [Concomitant]
     Indication: PAIN
     Route: 048
     Dates: start: 20100805

REACTIONS (3)
  - Progressive multifocal leukoencephalopathy [Recovered/Resolved with Sequelae]
  - Partial seizures [Recovered/Resolved with Sequelae]
  - Epilepsy [Not Recovered/Not Resolved]
